FAERS Safety Report 24399667 (Version 1)
Quarter: 2024Q4

REPORT INFORMATION
  Report Type: Spontaneous
  Country: CN (occurrence: CN)
  Receive Date: 20241005
  Receipt Date: 20241005
  Transmission Date: 20250114
  Serious: Yes (Hospitalization, Other)
  Sender: ABBVIE
  Company Number: CN-ABBVIE-5944421

PATIENT
  Age: 45 Year
  Sex: Male
  Weight: 72 kg

DRUGS (6)
  1. VENETOCLAX [Suspect]
     Active Substance: VENETOCLAX
     Indication: Chemotherapy
     Dosage: DAY 3
     Route: 048
     Dates: start: 20240909, end: 20240909
  2. VENETOCLAX [Suspect]
     Active Substance: VENETOCLAX
     Indication: Chemotherapy
     Dosage: DAY 5-8
     Route: 048
     Dates: start: 20240911, end: 20240914
  3. VENETOCLAX [Suspect]
     Active Substance: VENETOCLAX
     Indication: Chemotherapy
     Dosage: DAY 4
     Route: 048
     Dates: start: 20240910, end: 20240910
  4. OMACETAXINE MEPESUCCINATE [Suspect]
     Active Substance: OMACETAXINE MEPESUCCINATE
     Indication: Chemotherapy
     Dosage: 2 MILLIGRAM, DAY 1-6
     Route: 041
     Dates: start: 20240907, end: 20240913
  5. CYTARABINE HYDROCHLORIDE [Suspect]
     Active Substance: CYTARABINE HYDROCHLORIDE
     Indication: Chemotherapy
     Dosage: CYTARABINE HYDROCHLORIDE FOR INJECTION, DAY 1-7
     Route: 041
     Dates: start: 20240907, end: 20240914
  6. AZACITIDINE [Suspect]
     Active Substance: AZACITIDINE
     Indication: Chemotherapy
     Dosage: AZACITIDINE FOR INJECTION, DAY 1-6
     Route: 058
     Dates: start: 20240907, end: 20240913

REACTIONS (7)
  - Myelosuppression [Not Recovered/Not Resolved]
  - Rhonchi [Unknown]
  - Neutrophil count decreased [Recovering/Resolving]
  - Platelet count decreased [Recovering/Resolving]
  - White blood cell count decreased [Recovering/Resolving]
  - Skin haemorrhage [Unknown]
  - Gastrointestinal sounds abnormal [Unknown]

NARRATIVE: CASE EVENT DATE: 20240901
